FAERS Safety Report 15448012 (Version 1)
Quarter: 2018Q3

REPORT INFORMATION
  Report Type: Spontaneous
  Country: US (occurrence: US)
  Receive Date: 20180925
  Receipt Date: 20180925
  Transmission Date: 20181010
  Serious: Yes (Life-Threatening, Hospitalization)
  Sender: FDA-Public Use
  Company Number: None

PATIENT
  Age: 62 Year
  Sex: Male

DRUGS (1)
  1. CLOZAPINE (MYLAN) [Suspect]
     Active Substance: CLOZAPINE
     Indication: CARDIAC FAILURE CONGESTIVE
     Route: 048
     Dates: start: 20170613, end: 20170803

REACTIONS (5)
  - Hepatitis [None]
  - Troponin increased [None]
  - Cardiomyopathy [None]
  - Chest discomfort [None]
  - Leukocytosis [None]

NARRATIVE: CASE EVENT DATE: 20170714
